FAERS Safety Report 10459090 (Version 4)
Quarter: 2015Q1

REPORT INFORMATION
  Report Type: Spontaneous
  Country: US (occurrence: None)
  Receive Date: 20140915
  Receipt Date: 20150121
  Transmission Date: 20150720
  Serious: Yes (Other)
  Sender: FDA-Public Use
  Company Number: 2014-US-011387

PATIENT
  Age: 60 Year
  Sex: Male

DRUGS (2)
  1. XYREM [Suspect]
     Active Substance: SODIUM OXYBATE
     Indication: CATAPLEXY
     Route: 048
     Dates: start: 200808, end: 2008
  2. XYREM [Suspect]
     Active Substance: SODIUM OXYBATE
     Indication: NARCOLEPSY
     Route: 048
     Dates: start: 200808, end: 2008

REACTIONS (5)
  - Feeling abnormal [None]
  - Hernia [None]
  - Anxiety [None]
  - Procedural complication [None]
  - Dizziness [None]

NARRATIVE: CASE EVENT DATE: 2014
